FAERS Safety Report 13694371 (Version 2)
Quarter: 2017Q2

REPORT INFORMATION
  Report Type: Report from Study
  Country: US (occurrence: US)
  Receive Date: 20170627
  Receipt Date: 20170629
  Transmission Date: 20170830
  Serious: Yes (Death, Other)
  Sender: FDA-Public Use
  Company Number: US-GILEAD-2017-0280147

PATIENT
  Age: 40 Year
  Sex: Female

DRUGS (9)
  1. AMBRISENTAN [Suspect]
     Active Substance: AMBRISENTAN
     Indication: PULMONARY ARTERIAL HYPERTENSION
     Dosage: 10 MG, QD
     Route: 065
     Dates: end: 201706
  2. SPIRIVA [Concomitant]
     Active Substance: TIOTROPIUM BROMIDE MONOHYDRATE
  3. METOLAZONE. [Concomitant]
     Active Substance: METOLAZONE
  4. METOPROLOL. [Concomitant]
     Active Substance: METOPROLOL
  5. BUMETANIDE. [Concomitant]
     Active Substance: BUMETANIDE
  6. DIGOXIN. [Concomitant]
     Active Substance: DIGOXIN
  7. FERROUS                            /00023501/ [Concomitant]
  8. XARELTO [Concomitant]
     Active Substance: RIVAROXABAN
  9. LEVOTHYROXIN [Concomitant]
     Active Substance: LEVOTHYROXINE

REACTIONS (1)
  - Death [Fatal]

NARRATIVE: CASE EVENT DATE: 201706
